FAERS Safety Report 7720549-3 (Version None)
Quarter: 2011Q3

REPORT INFORMATION
  Report Type: 
  Country: None (occurrence: None)
  Receive Date: 20110831
  Receipt Date: 20110831
  Transmission Date: 20111222
  Serious: Yes (Life-Threatening, Hospitalization, Disabling, Other)
  Sender: FDA-Public Use
  Company Number: None

PATIENT
  Age: 27 Year
  Sex: Male
  Weight: 120.2 kg

DRUGS (2)
  1. GEODON [Suspect]
     Dates: start: 20081117, end: 20110629
  2. RISPERDAL [Concomitant]

REACTIONS (2)
  - UMBILICAL HERNIA [None]
  - WEIGHT INCREASED [None]
